FAERS Safety Report 4634794-7 (Version None)
Quarter: 2005Q2

REPORT INFORMATION
  Report Type: 
  Country: None (occurrence: None)
  Receive Date: 20050412
  Receipt Date: 20050412
  Transmission Date: 20051028
  Serious: Yes (Hospitalization)
  Sender: FDA-Public Use
  Company Number: None

PATIENT
  Age: 83 Year
  Sex: Female
  Weight: 58.9676 kg

DRUGS (8)
  1. LISINOPRIL [Suspect]
     Dosage: ORAL
     Route: 048
  2. ISOSORBIDE MONONITRATE [Concomitant]
  3. AMITRIPTYLINE HCL TAB [Concomitant]
  4. NEPHROVITE [Concomitant]
  5. AGGRENOX [Concomitant]
  6. DILTIAZEM [Concomitant]
  7. METOPROLOL TARTRATE [Concomitant]
  8. LEVOTHYROXINE SODIUM [Concomitant]

REACTIONS (1)
  - TONGUE DISORDER [None]
